FAERS Safety Report 19820607 (Version 1)
Quarter: 2021Q3

REPORT INFORMATION
  Report Type: Report from Study
  Country: US (occurrence: US)
  Receive Date: 20210913
  Receipt Date: 20210913
  Transmission Date: 20211014
  Serious: Yes (Other)
  Sender: FDA-Public Use
  Company Number: US-UCBSA-2021042247

PATIENT
  Age: 56 Year
  Sex: Female

DRUGS (1)
  1. LACOSAMIDE. [Suspect]
     Active Substance: LACOSAMIDE
     Indication: SEIZURE
     Dosage: 300 MILLIGRAM, 2X/DAY (BID)

REACTIONS (3)
  - COVID-19 [Unknown]
  - Cerebrovascular accident [Unknown]
  - Overdose [Unknown]

NARRATIVE: CASE EVENT DATE: 20210104
